FAERS Safety Report 19820276 (Version 1)
Quarter: 2021Q3

REPORT INFORMATION
  Report Type: Spontaneous
  Country: FR (occurrence: FR)
  Receive Date: 20210913
  Receipt Date: 20210913
  Transmission Date: 20211014
  Serious: Yes (Hospitalization)
  Sender: FDA-Public Use
  Company Number: NVSC2021FR202469

PATIENT
  Age: 89 Year
  Sex: Female
  Weight: 65.8 kg

DRUGS (2)
  1. RIFAMPICIN [Suspect]
     Active Substance: RIFAMPIN
     Indication: ENDOCARDITIS
     Dosage: UNK (600 MG MATIN 300 MG MIDI )
     Route: 048
     Dates: start: 20210603, end: 20210630
  2. DOXYCYCLINE. [Suspect]
     Active Substance: DOXYCYCLINE
     Indication: ENDOCARDITIS
     Dosage: UNK (200 MG/JR)
     Route: 048
     Dates: start: 20210603, end: 20210630

REACTIONS (1)
  - Erythema [Recovered/Resolved]

NARRATIVE: CASE EVENT DATE: 20210622
